FAERS Safety Report 12797530 (Version 2)
Quarter: 2016Q4

REPORT INFORMATION
  Report Type: Spontaneous
  Country: JP (occurrence: JP)
  Receive Date: 20160930
  Receipt Date: 20161024
  Transmission Date: 20170207
  Serious: Yes (Life-Threatening, Other)
  Sender: FDA-Public Use
  Company Number: PHJP2016JP025507

PATIENT
  Age: 42 Year
  Sex: Male
  Weight: 64 kg

DRUGS (5)
  1. ABILIFY [Suspect]
     Active Substance: ARIPIPRAZOLE
     Indication: INTENTIONAL SELF-INJURY
     Dosage: 69 MG, UNK (23 TABLETS)
     Route: 048
     Dates: start: 20160906
  2. LUNESTA [Suspect]
     Active Substance: ESZOPICLONE
     Indication: INTENTIONAL SELF-INJURY
     Dosage: 27 DF, UNK
     Route: 048
     Dates: start: 20160906
  3. ETIZOLAM [Suspect]
     Active Substance: ETIZOLAM
     Indication: INTENTIONAL SELF-INJURY
     Dosage: 59 MG, UNK (118 TABLETS )
     Route: 048
     Dates: start: 20160906
  4. ZOLPIDEM [Suspect]
     Active Substance: ZOLPIDEM\ZOLPIDEM TARTRATE
     Indication: INTENTIONAL SELF-INJURY
     Dosage: 1 DF, UNK
     Route: 048
     Dates: start: 20160906
  5. TEGRETOL [Suspect]
     Active Substance: CARBAMAZEPINE
     Indication: INTENTIONAL SELF-INJURY
     Dosage: 23400 MG, UNK (117 TABLETS)
     Route: 048
     Dates: start: 20160906

REACTIONS (5)
  - Suicide attempt [Unknown]
  - Altered state of consciousness [Recovering/Resolving]
  - Thrombocytopenia [Recovering/Resolving]
  - Epistaxis [Recovering/Resolving]
  - Anaemia [Recovering/Resolving]

NARRATIVE: CASE EVENT DATE: 20160906
